FAERS Safety Report 25815440 (Version 2)
Quarter: 2025Q4

REPORT INFORMATION
  Report Type: Spontaneous
  Country: US (occurrence: US)
  Receive Date: 20250918
  Receipt Date: 20251008
  Transmission Date: 20260118
  Serious: No
  Sender: TOLMAR
  Company Number: US-Tolmar-TLM-2025-06186

PATIENT

DRUGS (2)
  1. ELIGARD [Suspect]
     Active Substance: LEUPROLIDE ACETATE
     Indication: Prostate cancer
     Dosage: SUSPECT MEDICATION?EXPIRATION DATES: DEC-2026; NOV-2026; 30-NOV-2026?NDC: 62935-227-10, ?GTIN: 00362
     Dates: start: 20250821
  2. DEVICE [Suspect]
     Active Substance: DEVICE
     Indication: Prostate cancer
     Dosage: EXPIRATION DATES: DEC-2026; NOV-2026; 30-NOV-2026

REACTIONS (4)
  - Wrong technique in product usage process [Unknown]
  - Intercepted product preparation error [Unknown]
  - Device leakage [Unknown]
  - Product quality issue [Unknown]

NARRATIVE: CASE EVENT DATE: 20250821
